FAERS Safety Report 13917818 (Version 1)
Quarter: 2017Q3

REPORT INFORMATION
  Report Type: Report from Study
  Country: CA (occurrence: CA)
  Receive Date: 20170829
  Receipt Date: 20170829
  Transmission Date: 20171127
  Serious: Yes (Other)
  Sender: FDA-Public Use
  Company Number: CA-HLSUS-2017-CA-000883

PATIENT
  Age: 39 Year
  Sex: Female

DRUGS (2)
  1. CLOZARIL [Suspect]
     Active Substance: CLOZAPINE
     Indication: SCHIZOPHRENIA
     Dosage: 900 MG DAILY
     Route: 048
     Dates: start: 20160801, end: 20170801
  2. MODECATE [Concomitant]
     Active Substance: FLUPHENAZINE DECANOATE
     Dosage: 25 MG

REACTIONS (1)
  - Drug ineffective [Unknown]

NARRATIVE: CASE EVENT DATE: 20160801
